FAERS Safety Report 5503083-0 (Version None)
Quarter: 2007Q4

REPORT INFORMATION
  Report Type: 
  Country: None (occurrence: None)
  Receive Date: 20071029
  Receipt Date: 20071016
  Transmission Date: 20080405
  Serious: Yes (Other)
  Sender: FDA-Public Use
  Company Number: CIP07002040

PATIENT
  Sex: Female

DRUGS (8)
  1. ACTONEL [Suspect]
     Dosage: 35 MG, ONCE WEEKLY, ORAL
     Route: 048
     Dates: start: 20050101
  2. NEURONTIN [Concomitant]
  3. INTERFERON (INTERFERON) [Concomitant]
  4. ATENOLOL [Concomitant]
  5. VAGIFEM [Concomitant]
  6. VITAMIN D [Concomitant]
  7. VITAMINS [Concomitant]
  8. CHLOR-TRIMETON [Concomitant]

REACTIONS (2)
  - LYMPHOMA [None]
  - THYROID CANCER [None]
